FAERS Safety Report 17129569 (Version 6)
Quarter: 2020Q4

REPORT INFORMATION
  Report Type: Spontaneous
  Country: US (occurrence: US)
  Receive Date: 20191209
  Receipt Date: 20201008
  Transmission Date: 20210113
  Serious: No
  Sender: FDA-Public Use
  Company Number: US-PFIZER INC-2019522634

PATIENT
  Age: 72 Year
  Sex: Female
  Weight: 65.76 kg

DRUGS (6)
  1. ZOLOFT [Concomitant]
     Active Substance: SERTRALINE HYDROCHLORIDE
     Dosage: 150 MG, 1X/DAY
     Dates: start: 2008
  2. SERTRALINE HCL [Suspect]
     Active Substance: SERTRALINE HYDROCHLORIDE
     Indication: DEPRESSION
     Dosage: 150 MG, DAILY (A DAY)
     Dates: start: 2008
  3. SERTRALINE HCL [Suspect]
     Active Substance: SERTRALINE HYDROCHLORIDE
     Indication: DEPRESSION
     Dosage: 100 MG, ONCE DAILY
     Dates: start: 2009
  4. LEVOXYL [Concomitant]
     Active Substance: LEVOTHYROXINE SODIUM
     Dosage: 0.88 MG, 1X/DAY IN THE MORNING )
  5. CRESTOR [Concomitant]
     Active Substance: ROSUVASTATIN CALCIUM
     Dosage: 20 MG, 1X/DAY (IN THE EVENING)
     Dates: start: 2008
  6. LEVOXYL [Concomitant]
     Active Substance: LEVOTHYROXINE SODIUM
     Dosage: .088 MG, UNK
     Dates: start: 2000

REACTIONS (6)
  - Gastric disorder [Recovered/Resolved]
  - Abdominal discomfort [Recovered/Resolved]
  - Feeling abnormal [Unknown]
  - Drug ineffective [Unknown]
  - Gastrooesophageal reflux disease [Recovered/Resolved]
  - Headache [Unknown]

NARRATIVE: CASE EVENT DATE: 202009
